FAERS Safety Report 8385598-3 (Version None)
Quarter: 2012Q2

REPORT INFORMATION
  Report Type: 
  Country: None (occurrence: None)
  Receive Date: 20120523
  Receipt Date: 20120523
  Transmission Date: 20120825
  Serious: No
  Sender: FDA-Public Use
  Company Number: None

PATIENT
  Age: 63 Year
  Sex: Female

DRUGS (2)
  1. AVONEX [Suspect]
     Indication: MULTIPLE SCLEROSIS
     Dosage: 30MCG QSK IM
     Route: 030
     Dates: start: 19980929, end: 20000210
  2. AVONEX [Suspect]
     Indication: MULTIPLE SCLEROSIS
     Dosage: 30MCG QSK IM
     Route: 030
     Dates: start: 20120511

REACTIONS (5)
  - PAIN IN EXTREMITY [None]
  - MUSCLE SPASMS [None]
  - MOVEMENT DISORDER [None]
  - IMMOBILE [None]
  - ACTIVITIES OF DAILY LIVING IMPAIRED [None]
